FAERS Safety Report 7496604-2 (Version None)
Quarter: 2011Q2

REPORT INFORMATION
  Report Type: 
  Country: None (occurrence: None)
  Receive Date: 20110520
  Receipt Date: 20110520
  Transmission Date: 20111010
  Serious: Yes (Other)
  Sender: FDA-Public Use
  Company Number: None

PATIENT
  Age: 53 Year
  Sex: Male
  Weight: 91 kg

DRUGS (2)
  1. OXYCODONE HCL [Suspect]
     Indication: LARYNGEAL CANCER
     Dosage: 10 MG OTHER PO
     Route: 048
     Dates: start: 20110319, end: 20110416
  2. OXYCODONE HCL [Suspect]
     Indication: PAIN
     Dosage: 10 MG OTHER PO
     Route: 048
     Dates: start: 20110319, end: 20110416

REACTIONS (4)
  - RESPIRATORY DEPRESSION [None]
  - UNRESPONSIVE TO STIMULI [None]
  - SOMNOLENCE [None]
  - MENTAL STATUS CHANGES [None]
